FAERS Safety Report 10388248 (Version 4)
Quarter: 2016Q1

REPORT INFORMATION
  Report Type: Report from Study
  Country: DE (occurrence: DE)
  Receive Date: 20140815
  Receipt Date: 20160106
  Transmission Date: 20160525
  Serious: Yes (Hospitalization)
  Sender: FDA-Public Use
  Company Number: PHHY2014DE098705

PATIENT
  Sex: Female
  Weight: 70 kg

DRUGS (2)
  1. SALBUTAMOL CT [Concomitant]
     Indication: CHRONIC OBSTRUCTIVE PULMONARY DISEASE
     Dosage: 100 UG, QD
     Route: 055
     Dates: start: 20140312
  2. QVA149 [Suspect]
     Active Substance: INVESTIGATIONAL PRODUCT
     Indication: CHRONIC OBSTRUCTIVE PULMONARY DISEASE
     Dosage: 1 DF (85 ?G/ 43 ?G), QD
     Route: 055
     Dates: start: 20140312

REACTIONS (7)
  - Gastric haemorrhage [Recovered/Resolved]
  - Myocardial infarction [Recovered/Resolved]
  - Gastric haemorrhage [Recovered/Resolved]
  - Cardiac failure [Recovered/Resolved]
  - Dyspnoea [Recovered/Resolved]
  - Chest pain [Recovered/Resolved]
  - Chest discomfort [Recovered/Resolved]

NARRATIVE: CASE EVENT DATE: 20140407
